FAERS Safety Report 5443902-X (Version None)
Quarter: 2007Q3

REPORT INFORMATION
  Report Type: 
  Country: None (occurrence: None)
  Receive Date: 20070905
  Receipt Date: 20070830
  Transmission Date: 20080115
  Serious: Yes (Disabling)
  Sender: FDA-Public Use
  Company Number: GB-BOEHRINGER INGELHEIM PHARMACEUTICALS, INC.-2007-UK-02734UK

PATIENT
  Age: 67 Year
  Sex: Female

DRUGS (16)
  1. DIPYRIDAMOLE [Suspect]
     Indication: TRANSIENT ISCHAEMIC ATTACK
     Dosage: 2/1 DAYS
     Route: 048
     Dates: start: 20070219, end: 20070403
  2. ADCAL-D3 [Concomitant]
     Dosage: 1 DF 2/1 DAYS
     Route: 048
  3. ADIZEM-XL [Concomitant]
     Dosage: 1/1 DAYS
     Route: 048
  4. ASPIRIN [Concomitant]
     Dosage: 1DAYS
     Route: 048
  5. CODEINE PHOSPHATE AND ACETAMINOPHEN [Concomitant]
     Route: 048
  6. EFFERCITRATE [Concomitant]
     Dosage: 1 DAYS
     Route: 048
  7. FUROSEMIDE [Concomitant]
     Dosage: 1 DAYS
     Route: 048
  8. GLYCERYL TRINITRATE [Concomitant]
     Dosage: 1 DF AS NECESSARY
  9. HYOSCINE HBR HYT [Concomitant]
     Dosage: AS NECESSARY
     Route: 048
  10. ISOSORBIDE MONONITRATE [Concomitant]
     Dosage: 2/1 DAYS
     Route: 048
  11. NITROFURANTOIN [Concomitant]
     Dosage: 2/1/ DAYS
     Route: 048
  12. PERINDOPRIL ERBUMINE [Concomitant]
     Dosage: 1DAYS
     Route: 048
  13. RABEPRAZOLE SODIUM [Concomitant]
     Dosage: 2/1 DAYS
     Route: 048
  14. SIMVASTATIN [Concomitant]
     Dosage: 1DAYS
     Route: 048
  15. TOLTERODINE TARTRATE [Concomitant]
     Dosage: 2/1 DAYS
     Route: 048
  16. TOPIRAMATE [Concomitant]
     Dosage: 2/1/DAYS
     Route: 048

REACTIONS (3)
  - LETHARGY [None]
  - NAUSEA [None]
  - PARAESTHESIA [None]
